FAERS Safety Report 6030988-7 (Version None)
Quarter: 2009Q1

REPORT INFORMATION
  Report Type: 
  Country: None (occurrence: None)
  Receive Date: 20090106
  Receipt Date: 20090106
  Transmission Date: 20090719
  Serious: Yes (Other)
  Sender: FDA-Public Use
  Company Number: None

PATIENT
  Sex: Female
  Weight: 61.2356 kg

DRUGS (2)
  1. ACTONEL [Suspect]
     Indication: OSTEOPOROSIS
     Dosage: 150MG ONE/MONTH PO
     Route: 048
     Dates: start: 20081201
  2. ACTONEL [Suspect]
     Indication: OSTEOPOROSIS
     Dosage: 150MG ONE/MONTH PO
     Route: 048
     Dates: start: 20090101

REACTIONS (5)
  - ABDOMINAL PAIN UPPER [None]
  - DIARRHOEA [None]
  - INFLUENZA LIKE ILLNESS [None]
  - PAIN IN JAW [None]
  - VOMITING [None]
